FAERS Safety Report 25664804 (Version 3)
Quarter: 2025Q3

REPORT INFORMATION
  Report Type: Spontaneous
  Country: IN (occurrence: IN)
  Receive Date: 20250811
  Receipt Date: 20250819
  Transmission Date: 20251021
  Serious: Yes (Other)
  Sender: PFIZER
  Company Number: IN-PFIZER INC-PV202300182080

PATIENT
  Age: 78 Year
  Sex: Female

DRUGS (7)
  1. CRIZOTINIB [Suspect]
     Active Substance: CRIZOTINIB
     Indication: Lung adenocarcinoma
     Dosage: 250 MG, 1X/DAY
     Route: 048
     Dates: start: 202310
  2. CREMAFFIN PLUS [Concomitant]
     Indication: Constipation
  3. OMEZ D [Concomitant]
     Dosage: 1 DF, 1X/DAY (1 CAPSULE ODAC BBF X 90 DAYS)
  4. DUOLIN [IPRATROPIUM BROMIDE;SALBUTAMOL SULFATE] [Concomitant]
     Indication: Dyspnoea
  5. CALPOL [Concomitant]
     Active Substance: ACETAMINOPHEN
     Indication: Pain
     Dosage: 650 MG, 3X/DAY
  6. BUDESONIDE [Concomitant]
     Active Substance: BUDESONIDE
     Dosage: UNK, 2X/DAY
  7. FERONIA [Concomitant]
     Dosage: 1 DF, 1X/DAY (1 MONTH)
     Route: 048

REACTIONS (12)
  - Malignant neoplasm progression [Unknown]
  - Lung adenocarcinoma [Unknown]
  - Ischaemic stroke [Recovered/Resolved]
  - Groin pain [Unknown]
  - Abdominal distension [Unknown]
  - Dysphagia [Unknown]
  - Blood potassium increased [Unknown]
  - Body mass index increased [Unknown]
  - Bundle branch block left [Unknown]
  - Malaise [Unknown]
  - Blood creatinine increased [Unknown]
  - Abdominal tenderness [Unknown]

NARRATIVE: CASE EVENT DATE: 20231118
